FAERS Safety Report 25305825 (Version 2)
Quarter: 2025Q2

REPORT INFORMATION
  Report Type: Spontaneous
  Country: IT (occurrence: IT)
  Receive Date: 20250513
  Receipt Date: 20250524
  Transmission Date: 20250716
  Serious: Yes (Death)
  Sender: ABBVIE
  Company Number: None

PATIENT
  Age: 78 Year
  Sex: Male

DRUGS (1)
  1. VENETOCLAX [Suspect]
     Active Substance: VENETOCLAX
     Indication: Chronic lymphocytic leukaemia
     Dosage: VENCLYXTO 400 MG/DAY PER ORAL
     Route: 048
     Dates: start: 20210118, end: 202503

REACTIONS (3)
  - Cardiac failure [Fatal]
  - Pleural disorder [Fatal]
  - Pleural mesothelioma [Fatal]

NARRATIVE: CASE EVENT DATE: 20250101
